FAERS Safety Report 9465819 (Version 1)
Quarter: 2013Q3

REPORT INFORMATION
  Report Type: Spontaneous
  Country: US (occurrence: US)
  Receive Date: 20130820
  Receipt Date: 20130820
  Transmission Date: 20140515
  Serious: No
  Sender: FDA-Public Use
  Company Number: US-PFIZER INC-2013239142

PATIENT
  Age: 74 Year
  Sex: Female
  Weight: 89.8 kg

DRUGS (6)
  1. XELJANZ [Suspect]
     Indication: RHEUMATOID ARTHRITIS
     Dosage: 5 MG, TWICE A DAY
     Route: 048
  2. PREDNISONE [Concomitant]
     Dosage: UNK
     Route: 048
  3. CYMBALTA [Concomitant]
     Dosage: 20 MG, UNK
     Route: 048
  4. ZANTAC [Concomitant]
     Dosage: 150 MG, UNK
     Route: 048
  5. NEXIUM [Concomitant]
     Dosage: 20 MG, UNK
     Route: 048
  6. VITAMIN D [Concomitant]
     Dosage: 400 IU, UNK
     Route: 048

REACTIONS (2)
  - Drug effect decreased [Unknown]
  - Contusion [Unknown]
